FAERS Safety Report 21217786 (Version 1)
Quarter: 2022Q3

REPORT INFORMATION
  Report Type: Spontaneous
  Country: FR (occurrence: None)
  Receive Date: 20220816
  Receipt Date: 20220816
  Transmission Date: 20221027
  Serious: Yes (Hospitalization)
  Sender: FDA-Public Use
  Company Number: 2022A279451

PATIENT
  Age: 82 Year
  Sex: Male
  Weight: 68 kg

DRUGS (9)
  1. OMEPRAZOLE [Suspect]
     Active Substance: OMEPRAZOLE
     Indication: Gastrooesophageal reflux disease
     Route: 048
  2. COMIRNATY [Suspect]
     Active Substance: TOZINAMERAN
     Indication: COVID-19 immunisation
     Dosage: D1+D2+R11.0DF ONCE/SINGLE ADMINISTRATION
     Route: 030
     Dates: start: 20210406, end: 20211201
  3. LACTULOSE [Suspect]
     Active Substance: LACTULOSE
     Indication: Gastrointestinal motility disorder
     Route: 065
  4. MIANSERIN HYDROCHLORIDE [Suspect]
     Active Substance: MIANSERIN HYDROCHLORIDE
     Indication: Mixed anxiety and depressive disorder
     Route: 065
  5. ZINC GLUCONATE [Suspect]
     Active Substance: ZINC GLUCONATE
     Indication: Vitamin D deficiency
     Route: 065
  6. ELIQUIS [Suspect]
     Active Substance: APIXABAN
     Indication: Atrial fibrillation
     Route: 065
     Dates: end: 20220522
  7. XANAX [Suspect]
     Active Substance: ALPRAZOLAM
     Indication: Mixed anxiety and depressive disorder
     Route: 065
  8. CHOLECALCIFEROL [Suspect]
     Active Substance: CHOLECALCIFEROL
     Indication: Zinc deficiency
     Route: 065
  9. CICLOPIROX [Concomitant]
     Active Substance: CICLOPIROX
     Dosage: 1.0DF ONCE/SINGLE ADMINISTRATION
     Route: 065
     Dates: end: 20220522

REACTIONS (1)
  - Ischaemic stroke [Recovered/Resolved]

NARRATIVE: CASE EVENT DATE: 20220522
